FAERS Safety Report 21823677 (Version 1)
Quarter: 2023Q1

REPORT INFORMATION
  Report Type: Spontaneous
  Country: US (occurrence: US)
  Receive Date: 20230105
  Receipt Date: 20230105
  Transmission Date: 20230418
  Serious: No
  Sender: FDA-Public Use
  Company Number: US-PFIZER INC-202300003303

PATIENT
  Age: 65 Year

DRUGS (3)
  1. PAXLOVID [Suspect]
     Active Substance: NIRMATRELVIR\RITONAVIR
     Indication: COVID-19 treatment
     Dosage: 2 DF, 2X/DAY (1 WHITE PILL AND 1 PINK PILL TWICE A DAY, MORNING AND EVENING)
  2. PAXLOVID [Suspect]
     Active Substance: NIRMATRELVIR\RITONAVIR
     Dosage: 100 MG, 2X/DAY (1 WHITE 1 PINK)
  3. PAXLOVID [Suspect]
     Active Substance: NIRMATRELVIR\RITONAVIR
     Dosage: 150 MG, 2X/DAY

REACTIONS (3)
  - Circumstance or information capable of leading to medication error [Unknown]
  - Product label confusion [Unknown]
  - Incorrect dose administered [Unknown]
